FAERS Safety Report 6235466-8 (Version None)
Quarter: 2009Q2

REPORT INFORMATION
  Report Type: 
  Country: None (occurrence: None)
  Receive Date: 20090618
  Receipt Date: 20080523
  Transmission Date: 20091009
  Serious: No
  Sender: FDA-Public Use
  Company Number: US-ASTRAZENECA-2008UW03376

PATIENT
  Age: 61 Year
  Sex: Female
  Weight: 59 kg

DRUGS (4)
  1. RHINOCORT [Suspect]
     Indication: RESPIRATORY DISORDER
     Route: 045
  2. PREMARIN [Concomitant]
  3. HYDROCHLOROTHIAZIDE [Concomitant]
  4. ASTELIN [Concomitant]

REACTIONS (1)
  - LIMB INJURY [None]
